FAERS Safety Report 15837002 (Version 1)
Quarter: 2019Q1

REPORT INFORMATION
  Report Type: Spontaneous
  Country: US (occurrence: US)
  Receive Date: 20190117
  Receipt Date: 20190117
  Transmission Date: 20190417
  Serious: Yes (Other)
  Sender: FDA-Public Use
  Company Number: PHEH2019US002342

PATIENT
  Sex: Male

DRUGS (4)
  1. METHOTREXATE SODIUM. [Suspect]
     Active Substance: METHOTREXATE SODIUM
     Indication: JUVENILE IDIOPATHIC ARTHRITIS
     Dosage: UNK (ON AND OFF)
     Route: 048
     Dates: start: 2014, end: 201710
  2. ARA-C [Suspect]
     Active Substance: CYTARABINE
     Indication: ACUTE LYMPHOCYTIC LEUKAEMIA
     Dosage: UNK
     Route: 065
  3. METHOTREXATE SODIUM. [Suspect]
     Active Substance: METHOTREXATE SODIUM
     Indication: ACUTE LYMPHOCYTIC LEUKAEMIA
     Dosage: UNK
     Route: 048
     Dates: start: 201901
  4. HYDROCORTISONE. [Suspect]
     Active Substance: HYDROCORTISONE
     Indication: ACUTE LYMPHOCYTIC LEUKAEMIA
     Dosage: UNK
     Route: 065
     Dates: end: 201901

REACTIONS (10)
  - Acute lymphocytic leukaemia recurrent [Unknown]
  - Weight decreased [Unknown]
  - Lymphadenopathy [Unknown]
  - Headache [Unknown]
  - Superior sagittal sinus thrombosis [Unknown]
  - Pneumonia viral [Unknown]
  - Seizure [Unknown]
  - Pallor [Unknown]
  - Osteonecrosis [Unknown]
  - Fatigue [Unknown]

NARRATIVE: CASE EVENT DATE: 201407
